FAERS Safety Report 5334105-8 (Version None)
Quarter: 2007Q2

REPORT INFORMATION
  Report Type: 
  Country: None (occurrence: None)
  Receive Date: 20070524
  Receipt Date: 20070514
  Transmission Date: 20071010
  Serious: Yes (Hospitalization, Other)
  Sender: FDA-Public Use
  Company Number: US-MERCK-0603USA04129

PATIENT
  Age: 53 Year
  Sex: Female

DRUGS (7)
  1. FOSAMAX [Suspect]
     Indication: OSTEOPOROSIS
     Route: 048
     Dates: start: 20010406
  2. FOSAMAX [Suspect]
     Route: 048
     Dates: end: 20060201
  3. ZOCOR [Concomitant]
     Indication: BLOOD CHOLESTEROL INCREASED
     Route: 048
     Dates: start: 20020101
  4. PRILOSEC [Concomitant]
     Route: 065
     Dates: start: 19990101
  5. ESTRATEST [Concomitant]
     Route: 065
  6. PROZAC [Concomitant]
     Route: 065
  7. CARBIDOPA AND LEVODOPA [Concomitant]
     Route: 065

REACTIONS (6)
  - ANXIETY [None]
  - CARPAL TUNNEL SYNDROME [None]
  - NECK PAIN [None]
  - OSTEONECROSIS [None]
  - RECTAL HAEMORRHAGE [None]
  - SPINAL DISORDER [None]
